FAERS Safety Report 4743773-0 (Version None)
Quarter: 2005Q3

REPORT INFORMATION
  Report Type: 
  Country: None (occurrence: None)
  Receive Date: 20050809
  Receipt Date: 20050513
  Transmission Date: 20060218
  Serious: No
  Sender: FDA-Public Use
  Company Number: 2005FR-00183

PATIENT
  Age: 75 Year
  Sex: Male

DRUGS (1)
  1. ETODOLAC [Suspect]
     Indication: OSTEOARTHRITIS
     Dosage: 600 MG
     Route: 048
     Dates: start: 20050308, end: 20050415

REACTIONS (1)
  - MYOCARDIAL INFARCTION [None]
